FAERS Safety Report 8561324-X (Version None)
Quarter: 2012Q3

REPORT INFORMATION
  Report Type: 
  Country: None (occurrence: None)
  Receive Date: 20120802
  Receipt Date: 20120724
  Transmission Date: 20120928
  Serious: Yes (Hospitalization)
  Sender: FDA-Public Use
  Company Number: US-ASTRAZENECA-2012SE21516

PATIENT

DRUGS (2)
  1. CRESTOR [Suspect]
     Route: 048
  2. SIMVASTATIN [Concomitant]

REACTIONS (1)
  - CARDIOVASCULAR DISORDER [None]
